FAERS Safety Report 18877817 (Version 1)
Quarter: 2021Q1

REPORT INFORMATION
  Report Type: Spontaneous
  Country: US (occurrence: US)
  Receive Date: 20210211
  Receipt Date: 20210211
  Transmission Date: 20210420
  Serious: No
  Sender: FDA-Public Use
  Company Number: US-SA-2021SA037455

PATIENT
  Sex: Male

DRUGS (12)
  1. ATARAX [ALPRAZOLAM] [Concomitant]
     Active Substance: ALPRAZOLAM
  2. PREDNISONE. [Suspect]
     Active Substance: PREDNISONE
     Indication: ECZEMA
  3. TRIAMTERENE. [Concomitant]
     Active Substance: TRIAMTERENE
  4. LOVASTATIN. [Concomitant]
     Active Substance: LOVASTATIN
  5. DUPIXENT [Suspect]
     Active Substance: DUPILUMAB
     Indication: ECZEMA NUMMULAR
     Dosage: UNK
     Dates: start: 2019
  6. DUPIXENT [Suspect]
     Active Substance: DUPILUMAB
     Dosage: 300 MG, QOW
     Route: 058
     Dates: start: 202101
  7. CLOBETASOL [Suspect]
     Active Substance: CLOBETASOL
     Indication: ECZEMA
  8. DIPROLENE [Concomitant]
     Active Substance: BETAMETHASONE DIPROPIONATE
  9. SINGULAIR [Concomitant]
     Active Substance: MONTELUKAST SODIUM
  10. CLONAZEPAM. [Concomitant]
     Active Substance: CLONAZEPAM
     Indication: ANXIETY
  11. LISINOPRIL. [Concomitant]
     Active Substance: LISINOPRIL
     Indication: HYPERTENSION
  12. ZOLOFT [Concomitant]
     Active Substance: SERTRALINE HYDROCHLORIDE

REACTIONS (7)
  - Pollakiuria [Recovering/Resolving]
  - Eczema [Unknown]
  - Pruritus [Recovered/Resolved]
  - Rash [Unknown]
  - Condition aggravated [Unknown]
  - Drug ineffective [Unknown]
  - Insomnia [Unknown]

NARRATIVE: CASE EVENT DATE: 2020
